FAERS Safety Report 20450683 (Version 1)
Quarter: 2022Q1

REPORT INFORMATION
  Report Type: Spontaneous
  Country: JP (occurrence: JP)
  Receive Date: 20220209
  Receipt Date: 20220209
  Transmission Date: 20220423
  Serious: Yes (Other)
  Sender: FDA-Public Use
  Company Number: JP-ASTELLAS-2022JP001690

PATIENT
  Age: 78 Year
  Sex: Male

DRUGS (4)
  1. ZOLPIDEM TARTRATE [Suspect]
     Active Substance: ZOLPIDEM TARTRATE
     Indication: Product used for unknown indication
     Dosage: 10 MG, QD
     Route: 048
     Dates: start: 20211216, end: 20220119
  2. MIRABEGRON [Suspect]
     Active Substance: MIRABEGRON
     Indication: Hypertonic bladder
     Dosage: 25 MG, QD
     Route: 048
     Dates: start: 20211216, end: 20220119
  3. DUTASTERIDE [Concomitant]
     Active Substance: DUTASTERIDE
     Indication: Product used for unknown indication
     Dosage: 0.5 MG/DAY, UNKNOWN FREQ.
     Route: 048
  4. SILODOSIN OD [Concomitant]
     Indication: Product used for unknown indication
     Dosage: 8 MG/DAY, UNKNOWN FREQ.
     Route: 048

REACTIONS (1)
  - Urinary retention [Recovered/Resolved]
